FAERS Safety Report 4521024-X (Version None)
Quarter: 2004Q4

REPORT INFORMATION
  Report Type: 
  Country: None (occurrence: None)
  Receive Date: 20041208
  Receipt Date: 20041201
  Transmission Date: 20050328
  Serious: Yes (Other)
  Sender: FDA-Public Use
  Company Number: 200421805GDDC

PATIENT
  Age: 27 Year
  Sex: Female

DRUGS (2)
  1. METRONIDAZOLE [Suspect]
     Indication: PERICORONITIS
     Route: 048
     Dates: start: 20041109, end: 20041111
  2. CONTRACEPTIVE [Concomitant]

REACTIONS (1)
  - ANGIONEUROTIC OEDEMA [None]
